FAERS Safety Report 6994049-2 (Version None)
Quarter: 2010Q3

REPORT INFORMATION
  Report Type: 
  Country: None (occurrence: None)
  Receive Date: 20100917
  Receipt Date: 20100816
  Transmission Date: 20110219
  Serious: No
  Sender: FDA-Public Use
  Company Number: US-BAYER-201020089BCC

PATIENT
  Sex: Male
  Weight: 54 kg

DRUGS (1)
  1. ALEVE (CAPLET) [Suspect]
     Indication: HEADACHE
     Dosage: HE TOOK ABOUT 6 OR 7 ALEVES
     Route: 048

REACTIONS (1)
  - ABDOMINAL PAIN UPPER [None]
